FAERS Safety Report 20842192 (Version 1)
Quarter: 2022Q2

REPORT INFORMATION
  Report Type: Spontaneous
  Country: BA (occurrence: None)
  Receive Date: 20220518
  Receipt Date: 20220518
  Transmission Date: 20220720
  Serious: Yes (Other)
  Sender: FDA-Public Use
  Company Number: BA-ROCHE-3093984

PATIENT
  Sex: Female

DRUGS (1)
  1. GAZYVA [Suspect]
     Active Substance: OBINUTUZUMAB
     Indication: Chronic lymphocytic leukaemia
     Route: 042

REACTIONS (5)
  - Asphyxia [Unknown]
  - Asthenia [Unknown]
  - Tachycardia [Unknown]
  - Nausea [Unknown]
  - Myocardial infarction [Unknown]
